FAERS Safety Report 9365272 (Version 2)
Quarter: 2013Q3

REPORT INFORMATION
  Report Type: Report from Study
  Country: US (occurrence: US)
  Receive Date: 20130625
  Receipt Date: 20130731
  Transmission Date: 20140515
  Serious: Yes (Death)
  Sender: FDA-Public Use
  Company Number: US-ROCHE-1240793

PATIENT
  Sex: Female

DRUGS (12)
  1. ERIVEDGE [Suspect]
     Indication: BASAL CELL CARCINOMA
     Route: 065
  2. CLONAZEPAM [Concomitant]
     Route: 048
     Dates: start: 20120501
  3. DOCUSATE SODIUM [Concomitant]
     Indication: CONSTIPATION
     Route: 048
     Dates: start: 20110819
  4. FERROUS SULFATE [Concomitant]
     Route: 048
     Dates: start: 20110819
  5. GABAPENTIN [Concomitant]
     Route: 048
     Dates: start: 20110809
  6. HYDROCODONE/APAP [Concomitant]
     Route: 048
     Dates: start: 20120501
  7. LEVOTHYROXINE [Concomitant]
     Indication: HYPOTHYROIDISM
     Route: 065
     Dates: start: 20120602
  8. MIRTAZAPINE [Concomitant]
     Route: 065
     Dates: start: 20010122
  9. OMEPRAZOLE [Concomitant]
     Route: 048
     Dates: start: 20110819
  10. POTASSIUM CHLORIDE [Concomitant]
     Route: 048
     Dates: start: 19910219
  11. QUETIAPINE FUMARATE [Concomitant]
     Route: 048
     Dates: start: 20120323
  12. MEGACE [Concomitant]
     Route: 048

REACTIONS (1)
  - Dementia [Fatal]
